FAERS Safety Report 10487619 (Version 2)
Quarter: 2014Q4

REPORT INFORMATION
  Report Type: Report from Study
  Country: US (occurrence: US)
  Receive Date: 20141001
  Receipt Date: 20141001
  Transmission Date: 20150528
  Serious: Yes (Hospitalization, Other)
  Sender: FDA-Public Use
  Company Number: US-BAYER-2014-037778

PATIENT
  Age: 72 Year
  Sex: Male

DRUGS (3)
  1. NEXAVAR [Suspect]
     Active Substance: SORAFENIB
     Indication: HEPATIC CANCER
     Dosage: 400 MG, BID
     Route: 048
     Dates: start: 20140228, end: 20140228
  2. NEXAVAR [Suspect]
     Active Substance: SORAFENIB
     Indication: HEPATIC CANCER
     Dosage: 200 MG, BID
     Route: 048
     Dates: start: 20140301
  3. THERASPHERE [Concomitant]
     Active Substance: YTTRIUM Y-90

REACTIONS (4)
  - Nausea [None]
  - Hospitalisation [None]
  - Hepatotoxicity [None]
  - Fatigue [None]

NARRATIVE: CASE EVENT DATE: 201403
